FAERS Safety Report 19639730 (Version 2)
Quarter: 2021Q4

REPORT INFORMATION
  Report Type: Spontaneous
  Country: JP (occurrence: JP)
  Receive Date: 20210730
  Receipt Date: 20211013
  Transmission Date: 20220303
  Serious: Yes (Death, Other)
  Sender: FDA-Public Use
  Company Number: JP-BOEHRINGERINGELHEIM-2021-BI-118622

PATIENT
  Age: 78 Year
  Sex: Female

DRUGS (1)
  1. IDARUCIZUMAB [Suspect]
     Active Substance: IDARUCIZUMAB
     Indication: Procoagulant therapy
     Route: 042
     Dates: start: 20210723, end: 20210723

REACTIONS (1)
  - Malignant neoplasm progression [Fatal]
